FAERS Safety Report 9687521 (Version 1)
Quarter: 2013Q4

REPORT INFORMATION
  Report Type: Spontaneous
  Country: FR (occurrence: FR)
  Receive Date: 20131114
  Receipt Date: 20131114
  Transmission Date: 20140711
  Serious: Yes (Hospitalization, Other)
  Sender: FDA-Public Use
  Company Number: US-ASTRAZENECA-2013SE83381

PATIENT
  Age: 73 Year
  Sex: Female

DRUGS (12)
  1. KENZEN [Suspect]
     Indication: PRODUCT USED FOR UNKNOWN INDICATION
     Dosage: UNK
     Route: 048
     Dates: start: 201203
  2. TEMERIT [Suspect]
     Dates: start: 201302
  3. PLAVIX [Concomitant]
  4. KARDEGIC [Concomitant]
  5. COVERSYL /00790702/ [Concomitant]
  6. GALVUS [Concomitant]
  7. DIAMICRON [Concomitant]
  8. TAHOR [Concomitant]
  9. FUROSEMIDE [Concomitant]
  10. ALPHAGAN [Concomitant]
  11. CHIBRO-CADRON [Concomitant]
  12. DEXAFREE /00016001/ [Concomitant]

REACTIONS (3)
  - Cutaneous lupus erythematosus [Not Recovered/Not Resolved]
  - Rash erythematous [Unknown]
  - Rash [Unknown]
